FAERS Safety Report 7763478-1 (Version None)
Quarter: 2011Q3

REPORT INFORMATION
  Report Type: 
  Country: None (occurrence: None)
  Receive Date: 20110920
  Receipt Date: 20110912
  Transmission Date: 20111222
  Serious: Yes (Other)
  Sender: FDA-Public Use
  Company Number: US-MYLANLABS-2011S1019186

PATIENT
  Age: 68 Year
  Sex: Female
  Weight: 83.92 kg

DRUGS (3)
  1. HYDROCODONE [Concomitant]
  2. AROMASIN [Suspect]
     Indication: BREAST CANCER
     Route: 048
     Dates: start: 20110824
  3. FENTANYL-100 [Suspect]
     Indication: PAIN
     Route: 062
     Dates: start: 20110801, end: 20110825

REACTIONS (5)
  - ARTHRALGIA [None]
  - PAIN IN EXTREMITY [None]
  - DYSPNOEA [None]
  - LIBIDO INCREASED [None]
  - TOOTHACHE [None]
